FAERS Safety Report 24549387 (Version 5)
Quarter: 2025Q4

REPORT INFORMATION
  Report Type: Report from Study
  Country: CA (occurrence: None)
  Receive Date: 20241025
  Receipt Date: 20251027
  Transmission Date: 20260117
  Serious: Yes (Other)
  Sender: UCB
  Company Number: CA-UCBSA-2024043311

PATIENT

DRUGS (4)
  1. CERTOLIZUMAB PEGOL [Suspect]
     Active Substance: CERTOLIZUMAB PEGOL
     Indication: Rheumatoid arthritis
     Dosage: 400 MILLIGRAM, EV 2 WEEKS(QOW)
  2. CERTOLIZUMAB PEGOL [Suspect]
     Active Substance: CERTOLIZUMAB PEGOL
     Dosage: 200 MILLIGRAM, EV 2 WEEKS(QOW)
  3. CERTOLIZUMAB PEGOL [Suspect]
     Active Substance: CERTOLIZUMAB PEGOL
     Dosage: 200 MILLIGRAM, Q10DAYS
  4. CELEBREX [Concomitant]
     Active Substance: CELECOXIB
     Indication: Product used for unknown indication
     Dosage: UNK

REACTIONS (10)
  - Rheumatoid arthritis [Recovering/Resolving]
  - Thrombosis [Unknown]
  - Limb discomfort [Not Recovered/Not Resolved]
  - Matrixectomy [Recovered/Resolved]
  - Product ineffective [Unknown]
  - Off label use [Unknown]
  - Adverse drug reaction [Unknown]
  - Post procedural infection [Recovered/Resolved]
  - Post procedural haemorrhage [Recovered/Resolved]
  - Drug ineffective [Unknown]
